FAERS Safety Report 8988580 (Version 2)
Quarter: 2013Q1

REPORT INFORMATION
  Report Type: Spontaneous
  Country: IT (occurrence: IT)
  Receive Date: 20121228
  Receipt Date: 20130117
  Transmission Date: 20140127
  Serious: Yes (Hospitalization, Other)
  Sender: FDA-Public Use
  Company Number: IT-PFIZER INC-2012327999

PATIENT
  Age: 72 Year
  Sex: Female

DRUGS (3)
  1. ARACYTIN [Suspect]
     Indication: ACUTE MYELOID LEUKAEMIA
     Dosage: 100 MG/M2, 1X/DAY
     Route: 042
     Dates: start: 20120103, end: 20120109
  2. VIDAZA [Concomitant]
     Indication: ACUTE MYELOID LEUKAEMIA
     Dosage: 130 MG, UNK
     Route: 058
     Dates: start: 20111121, end: 20111223
  3. DAUNOBLASTINA [Concomitant]
     Indication: ACUTE MYELOID LEUKAEMIA
     Dosage: 40 MG/M2, UNK
     Route: 042
     Dates: start: 20120103, end: 20120105

REACTIONS (3)
  - Gastritis [Recovered/Resolved]
  - Haematemesis [Unknown]
  - Melaena [Unknown]
